FAERS Safety Report 15294952 (Version 1)
Quarter: 2018Q3

REPORT INFORMATION
  Report Type: Spontaneous
  Country: US (occurrence: US)
  Receive Date: 20180807
  Receipt Date: 20180807
  Transmission Date: 20181010
  Serious: Yes (Disabling, Other)
  Sender: FDA-Public Use
  Company Number: None

PATIENT
  Age: 65 Year
  Sex: Male
  Weight: 83.25 kg

DRUGS (2)
  1. LISINOPRIL 10 MG TABLETS [Suspect]
     Active Substance: LISINOPRIL
     Indication: HYPERTENSION
     Dosage: ?          QUANTITY:1 TABLET(S);?
     Route: 048
     Dates: start: 20170908, end: 20171006
  2. LISINOPRIL. [Suspect]
     Active Substance: LISINOPRIL
     Indication: HYPERTENSION
     Dosage: ?          QUANTITY:1 TABLET(S);?
     Route: 048
     Dates: start: 20180102, end: 20180202

REACTIONS (6)
  - Muscle spasms [None]
  - Cough [None]
  - Abdominal discomfort [None]
  - Nausea [None]
  - Hepatic mass [None]
  - Cholangiocarcinoma [None]

NARRATIVE: CASE EVENT DATE: 20170908
